FAERS Safety Report 25257160 (Version 2)
Quarter: 2025Q2

REPORT INFORMATION
  Report Type: Report from Study
  Country: JP (occurrence: JP)
  Receive Date: 20250430
  Receipt Date: 20250516
  Transmission Date: 20250717
  Serious: Yes (Hospitalization)
  Sender: BOEHRINGER INGELHEIM
  Company Number: JP-NBI-2025-BI-024323

PATIENT
  Age: 84 Year
  Sex: Male
  Weight: 72.1 kg

DRUGS (4)
  1. OFEV [Suspect]
     Active Substance: NINTEDANIB
     Indication: Interstitial lung disease
     Dates: start: 20220303, end: 20220623
  2. OFEV [Suspect]
     Active Substance: NINTEDANIB
     Dates: start: 20220624, end: 20240208
  3. OFEV [Suspect]
     Active Substance: NINTEDANIB
     Dates: start: 20240209, end: 20241201
  4. PIRFENIDONE [Concomitant]
     Active Substance: PIRFENIDONE
     Indication: Product used for unknown indication

REACTIONS (1)
  - Haemorrhage intracranial [Recovered/Resolved]

NARRATIVE: CASE EVENT DATE: 20241201
